FAERS Safety Report 9959902 (Version 1)
Quarter: 2014Q1

REPORT INFORMATION
  Report Type: Spontaneous
  Country: US (occurrence: None)
  Receive Date: 20140228
  Receipt Date: 20140228
  Transmission Date: 20141002
  Serious: Yes (Hospitalization)
  Sender: FDA-Public Use
  Company Number: JPI-P-014117

PATIENT
  Age: 57 Year
  Sex: Female

DRUGS (7)
  1. XYREM (SODIUM OXYBATE) ORAL SOLUTION, 500 MG/ML [Suspect]
     Indication: NARCOLEPSY
     Route: 048
     Dates: start: 20080125
  2. XYREM (SODIUM OXYBATE) ORAL SOLUTION, 500 MG/ML [Suspect]
     Indication: CATAPLEXY
     Route: 048
     Dates: start: 20080125
  3. CLONAZEPARN [Concomitant]
  4. SYNTHROID [Concomitant]
  5. ACETAMINOPHEN W/HYDROCODONE [Concomitant]
  6. PROZAC [Concomitant]
  7. BUROPION XL [Concomitant]

REACTIONS (2)
  - Bronchitis [None]
  - Chest discomfort [None]
